FAERS Safety Report 4909899-3 (Version None)
Quarter: 2006Q1

REPORT INFORMATION
  Report Type: 
  Country: None (occurrence: None)
  Receive Date: 20060208
  Receipt Date: 20060130
  Transmission Date: 20060701
  Serious: Yes (Death, Hospitalization)
  Sender: FDA-Public Use
  Company Number: HQWYE671322NOV05

PATIENT
  Age: 50 Year
  Sex: Male

DRUGS (2)
  1. EFFEXOR [Suspect]
     Indication: DEPRESSION
     Dosage: 150 MG 2X PER 1 DAY, ORAL
     Route: 048
     Dates: start: 20050701, end: 20050802
  2. IBUPROFEN [Concomitant]

REACTIONS (12)
  - ABDOMINAL PAIN [None]
  - ASPIRATION [None]
  - ASTHENIA [None]
  - BLOOD PRESSURE DIASTOLIC DECREASED [None]
  - CARDIAC ARREST [None]
  - DRUG TOXICITY [None]
  - HAEMORRHAGE [None]
  - INTENTIONAL OVERDOSE [None]
  - RESTLESSNESS [None]
  - SELF INJURIOUS BEHAVIOUR [None]
  - VENTRICULAR TACHYCARDIA [None]
  - VOMITING [None]
